FAERS Safety Report 9518889 (Version 1)
Quarter: 2013Q3

REPORT INFORMATION
  Report Type: Spontaneous
  Country: IT (occurrence: IT)
  Receive Date: 20130912
  Receipt Date: 20130912
  Transmission Date: 20140515
  Serious: Yes (Hospitalization)
  Sender: FDA-Public Use
  Company Number: IT-PFIZER INC-2013260412

PATIENT
  Age: 87 Year
  Sex: Female

DRUGS (8)
  1. MEDROL [Suspect]
     Dosage: 1 DF, 1X/DAY
     Route: 048
     Dates: start: 20130618
  2. PLAVIX [Suspect]
     Indication: THROMBOSIS PROPHYLAXIS
     Dosage: 1 DF, 1X/DAY
     Route: 048
     Dates: start: 20130101
  3. CARDIOASPIRIN [Suspect]
     Indication: THROMBOSIS PROPHYLAXIS
     Dosage: 1 DF, 1X/DAY
     Route: 048
     Dates: start: 20130101
  4. LASIX [Concomitant]
     Dosage: 1 DF, UNK
     Route: 048
  5. LANTUS [Concomitant]
     Dosage: 10 IU, ({100)
     Route: 058
  6. LYRICA [Concomitant]
     Dosage: UNK
     Route: 048
  7. APIDRA [Concomitant]
     Dosage: 24 IU (INFERIOR TO 100)
     Route: 058
  8. TAVOR [Concomitant]
     Dosage: UNK
     Route: 048

REACTIONS (1)
  - Rectal haemorrhage [Unknown]
